FAERS Safety Report 17402450 (Version 1)
Quarter: 2020Q1

REPORT INFORMATION
  Report Type: Spontaneous
  Country: US (occurrence: US)
  Receive Date: 20200210
  Receipt Date: 20200210
  Transmission Date: 20200409
  Serious: No
  Sender: FDA-Public Use
  Company Number: None

PATIENT
  Age: 46 Year
  Sex: Female
  Weight: 90 kg

DRUGS (10)
  1. LOSARTAN. [Concomitant]
     Active Substance: LOSARTAN
  2. METHOCARBAM [Concomitant]
     Active Substance: METHOCARBAMOL
  3. ROPINIROLE. [Concomitant]
     Active Substance: ROPINIROLE
  4. MULIVITAMIN [Concomitant]
  5. AMLODIPINE [Concomitant]
     Active Substance: AMLODIPINE BESYLATE
  6. LEVOCETIRIZINE [Concomitant]
     Active Substance: LEVOCETIRIZINE
  7. CYMBALTA [Suspect]
     Active Substance: DULOXETINE HYDROCHLORIDE
     Indication: FIBROMYALGIA
     Dosage: ?          QUANTITY:60 CAPSULE(S);?
     Route: 048
     Dates: start: 20190918, end: 20200101
  8. METOPROLTAR [Concomitant]
  9. METOPROLTAR [Concomitant]
  10. MAGNESIUM [Concomitant]
     Active Substance: MAGNESIUM

REACTIONS (5)
  - Heart rate increased [None]
  - Insomnia [None]
  - Rash erythematous [None]
  - Tremor [None]
  - Gait inability [None]

NARRATIVE: CASE EVENT DATE: 20190901
